FAERS Safety Report 24352712 (Version 2)
Quarter: 2024Q4

REPORT INFORMATION
  Report Type: Spontaneous
  Country: JP (occurrence: JP)
  Receive Date: 20240923
  Receipt Date: 20241016
  Transmission Date: 20250115
  Serious: Yes (Other)
  Sender: MERCK
  Company Number: JP-009507513-2408JPN007239

PATIENT
  Age: 73 Year
  Sex: Male
  Weight: 67.3 kg

DRUGS (11)
  1. SUGAMMADEX SODIUM [Suspect]
     Active Substance: SUGAMMADEX SODIUM
     Indication: Neuromuscular blockade reversal
     Dosage: 200 MILLIGRAM SYRINGE, QD
     Route: 042
     Dates: start: 20240814, end: 20240814
  2. FENTANYL CITRATE [Concomitant]
     Active Substance: FENTANYL CITRATE
     Indication: Analgesic therapy
     Dosage: 300 MICROGRAM, QD
     Route: 042
     Dates: start: 20240814, end: 20240814
  3. ROCURONIUM BROMIDE [Concomitant]
     Active Substance: ROCURONIUM BROMIDE
     Indication: Hypotonia
     Dosage: DOSE: 10MG-50 MG, DOSAGE: TWICE
     Route: 042
     Dates: start: 20240814, end: 20240814
  4. PHENYLEPHRINE HYDROCHLORIDE [Concomitant]
     Active Substance: PHENYLEPHRINE HYDROCHLORIDE
     Indication: Vasopressive therapy
     Dosage: DOSE: 100 MCG-150MCG, DOSAGE: THIRTEEN TIMES
     Route: 042
     Dates: start: 20240814, end: 20240814
  5. FLURBIPROFEN AXETIL [Concomitant]
     Active Substance: FLURBIPROFEN AXETIL
     Indication: Analgesic therapy
     Dosage: 50 MILLIGRAM, QD
     Route: 042
     Dates: start: 20240814, end: 20240814
  6. LIDOCAINE HYDROCHLORIDE [Concomitant]
     Active Substance: LIDOCAINE HYDROCHLORIDE
     Indication: Arrhythmia
     Dosage: 100 MILLIGRAM, QD
     Route: 042
     Dates: start: 20240814, end: 20240814
  7. ONDANSETRON HYDROCHLORIDE [Concomitant]
     Active Substance: ONDANSETRON HYDROCHLORIDE
     Indication: Antiemetic supportive care
     Dosage: 4 MILLIGRAM, QD
     Route: 042
     Dates: start: 20240814, end: 20240814
  8. REMIFENTANIL HYDROCHLORIDE [Concomitant]
     Active Substance: REMIFENTANIL HYDROCHLORIDE
     Indication: Analgesic therapy
     Dosage: 1-6 MCG/KG/MIN, DOSAGE: ONCE
     Route: 042
     Dates: start: 20240814, end: 20240814
  9. NOREPINEPHRINE [Concomitant]
     Active Substance: NOREPINEPHRINE\NOREPINEPHRINE BITARTRATE
     Indication: Vasopressive therapy
     Dosage: 1-3 MCG/KG/MIN, DOSAGE: ONCE
     Route: 042
     Dates: start: 20240814, end: 20240814
  10. DIPRIVAN [Concomitant]
     Active Substance: PROPOFOL
     Indication: Induction of anaesthesia
     Dosage: 1-2.7 MCG/ML, DOSAGE: ONCE
     Route: 042
     Dates: start: 20240814, end: 20240814
  11. LANDIOLOL HYDROCHLORIDE [Concomitant]
     Active Substance: LANDIOLOL HYDROCHLORIDE
     Indication: Arrhythmia
     Dosage: 3-6 MCG/KG/MIN, DOSAGE: ONCE
     Route: 042
     Dates: start: 20240814, end: 20240814

REACTIONS (5)
  - Anaphylactic reaction [Recovered/Resolved]
  - Blood pressure decreased [Recovered/Resolved]
  - Hypoxia [Recovered/Resolved]
  - Airway peak pressure increased [Recovered/Resolved]
  - Tidal volume decreased [Recovered/Resolved]

NARRATIVE: CASE EVENT DATE: 20240814
